FAERS Safety Report 16468516 (Version 12)
Quarter: 2021Q4

REPORT INFORMATION
  Report Type: Report from Study
  Country: JP (occurrence: JP)
  Receive Date: 20190624
  Receipt Date: 20211230
  Transmission Date: 20220303
  Serious: Yes (Other)
  Sender: FDA-Public Use
  Company Number: JP-ASTELLAS-2019JP012378

PATIENT
  Age: 71 Year
  Sex: Male
  Weight: 60 kg

DRUGS (31)
  1. GILTERITINIB [Suspect]
     Active Substance: GILTERITINIB
     Indication: Acute myeloid leukaemia recurrent
     Route: 048
     Dates: start: 20181211, end: 20190118
  2. GILTERITINIB [Suspect]
     Active Substance: GILTERITINIB
     Route: 048
  3. GILTERITINIB [Suspect]
     Active Substance: GILTERITINIB
     Route: 048
     Dates: start: 20190123, end: 20190206
  4. GILTERITINIB [Suspect]
     Active Substance: GILTERITINIB
     Route: 048
     Dates: start: 20190215, end: 20190301
  5. GILTERITINIB [Suspect]
     Active Substance: GILTERITINIB
     Route: 048
     Dates: start: 20190315, end: 20190405
  6. GILTERITINIB [Suspect]
     Active Substance: GILTERITINIB
     Route: 048
     Dates: start: 20190412, end: 20190426
  7. GILTERITINIB [Suspect]
     Active Substance: GILTERITINIB
     Route: 048
     Dates: start: 20190531, end: 201906
  8. GILTERITINIB [Suspect]
     Active Substance: GILTERITINIB
     Dosage: 120 MG, UNKNOWN FREQ.
     Route: 065
     Dates: start: 201906, end: 201907
  9. GILTERITINIB [Suspect]
     Active Substance: GILTERITINIB
     Dosage: 80 MG, UNKNOWN FREQ.
     Route: 065
     Dates: start: 201908, end: 201909
  10. GILTERITINIB [Suspect]
     Active Substance: GILTERITINIB
     Dosage: 40 MG, UNKNOWN FREQ.
     Route: 065
     Dates: start: 201909, end: 201909
  11. GILTERITINIB [Suspect]
     Active Substance: GILTERITINIB
     Dosage: 80 MG, UNKNOWN FREQ.
     Route: 065
     Dates: start: 201909, end: 201911
  12. GILTERITINIB [Suspect]
     Active Substance: GILTERITINIB
     Dosage: 120 MG, UNKNOWN FREQ.
     Route: 065
     Dates: start: 202001, end: 202002
  13. GILTERITINIB [Suspect]
     Active Substance: GILTERITINIB
     Dosage: 120 MG, UNKNOWN FREQ.
     Route: 065
     Dates: start: 202002, end: 202003
  14. GILTERITINIB [Suspect]
     Active Substance: GILTERITINIB
     Dosage: 120 MG, UNKNOWN FREQ.
     Route: 065
     Dates: start: 202003, end: 202003
  15. GILTERITINIB [Suspect]
     Active Substance: GILTERITINIB
     Dosage: 120 MG, UNKNOWN FREQ.
     Route: 065
     Dates: start: 202008, end: 202008
  16. GILTERITINIB [Suspect]
     Active Substance: GILTERITINIB
     Dosage: UNK UNK, UNKNOWN FREQ.
     Route: 065
     Dates: start: 202008, end: 202008
  17. GILTERITINIB [Suspect]
     Active Substance: GILTERITINIB
     Dosage: 120 MG, UNKNOWN FREQ.
     Route: 065
     Dates: start: 202008, end: 202009
  18. GILTERITINIB [Suspect]
     Active Substance: GILTERITINIB
     Dosage: UNK UNK, UNKNOWN FREQ.
     Route: 065
     Dates: start: 202009
  19. VONOPRAZAN [Concomitant]
     Active Substance: VONOPRAZAN
     Indication: Prophylaxis
     Dosage: 10 MG/DAY, UNKNOWN FREQ.
     Route: 048
  20. FEBUXOSTAT [Concomitant]
     Active Substance: FEBUXOSTAT
     Indication: Hyperuricaemia
     Dosage: 10 MG/DAY, UNKNOWN FREQ.
     Route: 048
  21. LASIX                              /00032601/ [Concomitant]
     Indication: Oedema
     Dosage: 20 MG/DAY, UNKNOWN FREQ.
     Route: 048
  22. DIETARY SUPPLEMENT\PROBIOTICS [Concomitant]
     Active Substance: DIETARY SUPPLEMENT\PROBIOTICS
     Indication: Prophylaxis
     Dosage: 3 DF/DAY, UNKNOWN FREQ.
     Route: 048
  23. MAGNESIUM OXIDE [Concomitant]
     Active Substance: MAGNESIUM OXIDE
     Indication: Constipation
     Dosage: 990 MG/DAY, UNKNOWN FREQ.
     Route: 048
  24. FLUCONAZOLE [Concomitant]
     Active Substance: FLUCONAZOLE
     Indication: Prophylaxis
     Dosage: 200 MG/DAY, UNKNOWN FREQ.
     Route: 048
  25. QUIZARTINIB [Concomitant]
     Active Substance: QUIZARTINIB
     Indication: Product used for unknown indication
     Dosage: UNK UNK, UNKNOWN FREQ.
     Route: 065
  26. QUIZARTINIB [Concomitant]
     Active Substance: QUIZARTINIB
     Dosage: 26.5 MG, UNKNOWN FREQ.
     Route: 065
     Dates: start: 201911, end: 201911
  27. QUIZARTINIB [Concomitant]
     Active Substance: QUIZARTINIB
     Dosage: 53 MG, UNKNOWN FREQ.
     Route: 065
     Dates: start: 201911, end: 201911
  28. QUIZARTINIB [Concomitant]
     Active Substance: QUIZARTINIB
     Dosage: 26.5 MG, UNKNOWN FREQ.
     Route: 065
     Dates: start: 201911, end: 202001
  29. QUIZARTINIB [Concomitant]
     Active Substance: QUIZARTINIB
     Dosage: 26.5 MG, UNKNOWN FREQ.
     Route: 065
     Dates: start: 202003, end: 202007
  30. QUIZARTINIB [Concomitant]
     Active Substance: QUIZARTINIB
     Dosage: 26.5 MG, UNKNOWN FREQ.
     Route: 065
     Dates: start: 202009, end: 202009
  31. QUIZARTINIB [Concomitant]
     Active Substance: QUIZARTINIB
     Dosage: UNK UNK, UNKNOWN FREQ.
     Route: 065
     Dates: start: 202009

REACTIONS (10)
  - Myelosuppression [Unknown]
  - Platelet count decreased [Recovered/Resolved]
  - Blood creatinine decreased [Unknown]
  - Restless legs syndrome [Recovered/Resolved]
  - Blood lactate dehydrogenase increased [Not Recovered/Not Resolved]
  - Blood creatinine increased [Not Recovered/Not Resolved]
  - Aspartate aminotransferase increased [Not Recovered/Not Resolved]
  - Myalgia [Unknown]
  - Eczema asteatotic [Unknown]
  - Diverticulitis [Recovered/Resolved]

NARRATIVE: CASE EVENT DATE: 20181215
